FAERS Safety Report 7478134-7 (Version None)
Quarter: 2011Q2

REPORT INFORMATION
  Report Type: 
  Country: None (occurrence: None)
  Receive Date: 20110511
  Receipt Date: 20110511
  Transmission Date: 20111010
  Serious: Yes (Other)
  Sender: FDA-Public Use
  Company Number: None

PATIENT
  Age: 44 Year
  Sex: Female
  Weight: 58.0604 kg

DRUGS (2)
  1. LEVAQUIN [Suspect]
     Indication: SINUSITIS
     Dosage: 14 DAYS PO
     Route: 048
     Dates: start: 20090815, end: 20100111
  2. AVELOX [Suspect]
     Indication: SINUSITIS
     Dosage: 14 DAYS PO
     Route: 048
     Dates: start: 20110110, end: 20110112

REACTIONS (18)
  - FEELING ABNORMAL [None]
  - NIGHTMARE [None]
  - SKIN DISORDER [None]
  - STAPHYLOCOCCAL INFECTION [None]
  - TENDON DISORDER [None]
  - INFLUENZA LIKE ILLNESS [None]
  - FIBROMYALGIA [None]
  - BLISTER [None]
  - DEAFNESS [None]
  - DECREASED APPETITE [None]
  - MYALGIA [None]
  - HALLUCINATION [None]
  - NECK PAIN [None]
  - ARTHRALGIA [None]
  - IRRITABLE BOWEL SYNDROME [None]
  - MALAISE [None]
  - TREMOR [None]
  - PARANOIA [None]
